FAERS Safety Report 9460664 (Version 2)
Quarter: 2013Q3

REPORT INFORMATION
  Report Type: Spontaneous
  Country: GB (occurrence: None)
  Receive Date: 20130813
  Receipt Date: 20130819
  Transmission Date: 20140515
  Serious: Yes (Other)
  Sender: FDA-Public Use
  Company Number: 2013GMK006416

PATIENT
  Age: 57 Year
  Sex: Female

DRUGS (3)
  1. TOPIRAMATE [Suspect]
     Indication: NEURALGIA
     Route: 048
     Dates: start: 20121217, end: 20121227
  2. CO-CODAMOL (CODEINE PHOSPHATE, PARACETAMOL) [Concomitant]
  3. DOSULEPIN (DOSULEPIN) [Concomitant]

REACTIONS (3)
  - Alexia [None]
  - Dysarthria [None]
  - Speech disorder [None]
